FAERS Safety Report 4385816-2 (Version None)
Quarter: 2004Q2

REPORT INFORMATION
  Report Type: 
  Country: None (occurrence: None)
  Receive Date: 20040628
  Receipt Date: 20040610
  Transmission Date: 20050107
  Serious: Yes (Hospitalization)
  Sender: FDA-Public Use
  Company Number: SE-ROCHE-370724

PATIENT
  Age: 47 Year
  Sex: Female

DRUGS (2)
  1. PEGASYS [Suspect]
     Indication: HEPATITIS C
     Route: 058
     Dates: start: 20031127, end: 20040220
  2. COPEGUS [Suspect]
     Indication: HEPATITIS C
     Route: 048
     Dates: start: 20031127, end: 20040220

REACTIONS (8)
  - ATRIAL FLUTTER [None]
  - GENERAL PHYSICAL HEALTH DETERIORATION [None]
  - HYPERTHYROIDISM [None]
  - LUNG INFILTRATION [None]
  - PALPITATIONS [None]
  - PERICARDITIS [None]
  - PITYRIASIS ROSEA [None]
  - SYSTEMIC INFLAMMATORY RESPONSE SYNDROME [None]
